FAERS Safety Report 9403532 (Version 1)
Quarter: 2013Q3

REPORT INFORMATION
  Report Type: Spontaneous
  Country: US (occurrence: US)
  Receive Date: 20130716
  Receipt Date: 20130716
  Transmission Date: 20140515
  Serious: Yes (Death, Other)
  Sender: FDA-Public Use
  Company Number: US-PFIZER INC-2013203757

PATIENT
  Age: 58 Year
  Sex: Male

DRUGS (7)
  1. MIRTAZAPINE [Suspect]
     Dosage: UNK
  2. TRAMADOL HCL [Suspect]
     Indication: PAIN
     Dosage: 10 PILLS
  3. TRAMADOL HCL [Suspect]
     Dosage: UNK
  4. GABAPENTIN [Suspect]
     Dosage: UNK
  5. HYDROXYZINE PAMOATE [Suspect]
     Dosage: 9 (25 MG) TABLETS WERE TAKEN OVER 6 DAYS
  6. HYDROXYZINE PAMOATE [Suspect]
     Dosage: 75 MG, DAILY DOSE (3 X 25MG)
  7. DULOXETINE [Suspect]
     Dosage: UNK

REACTIONS (5)
  - Toxicity to various agents [Fatal]
  - Pulmonary congestion [Unknown]
  - Liver injury [Unknown]
  - Cardiomegaly [Unknown]
  - Oedema [Unknown]
